FAERS Safety Report 5943583-2 (Version None)
Quarter: 2008Q4

REPORT INFORMATION
  Report Type: 
  Country: None (occurrence: None)
  Receive Date: 20081106
  Receipt Date: 20080502
  Transmission Date: 20090506
  Serious: No
  Sender: FDA-Public Use
  Company Number: A0727273A

PATIENT
  Age: 58 Year
  Sex: Female
  Weight: 63.6 kg

DRUGS (10)
  1. AMOXYL [Suspect]
     Route: 048
     Dates: start: 20070517, end: 20070524
  2. HUMIRA [Suspect]
     Indication: CROHN'S DISEASE
     Route: 058
     Dates: start: 20070511, end: 20070511
  3. PENTASA [Concomitant]
     Indication: CROHN'S DISEASE
  4. PANTOPRAZOLE SODIUM [Concomitant]
  5. RAMIPRIL [Concomitant]
     Indication: BLOOD PRESSURE
  6. CLOPIDOGREL [Concomitant]
     Indication: ANTICOAGULANT THERAPY
  7. FOLIC ACID [Concomitant]
  8. MULTI-VITAMIN [Concomitant]
  9. CALCIUM CARBONATE [Concomitant]
  10. ACIDOPHILUS [Concomitant]

REACTIONS (2)
  - DIARRHOEA [None]
  - LIP BLISTER [None]
